FAERS Safety Report 4364053-1 (Version None)
Quarter: 2004Q2

REPORT INFORMATION
  Report Type: 
  Country: None (occurrence: None)
  Receive Date: 20040519
  Receipt Date: 20040503
  Transmission Date: 20050107
  Serious: Yes (Death, Hospitalization)
  Sender: FDA-Public Use
  Company Number: A-CH2004-06005

PATIENT
  Age: 86 Year
  Sex: Female
  Weight: 59 kg

DRUGS (6)
  1. TRACLEER [Suspect]
     Indication: PULMONARY HYPERTENSION
     Dosage: SEE IMAGE
     Route: 048
     Dates: start: 20021206, end: 20030109
  2. TRACLEER [Suspect]
     Indication: PULMONARY HYPERTENSION
     Dosage: SEE IMAGE
     Route: 048
     Dates: start: 20030110, end: 20040219
  3. TRACLEER [Suspect]
     Indication: PULMONARY HYPERTENSION
     Dosage: SEE IMAGE
     Route: 048
     Dates: start: 20040220, end: 20040421
  4. TRAMADOL HCL [Concomitant]
  5. PARIET (RABEPRAZOLE SODIUM) [Concomitant]
  6. REDOMEX (AMITRIPTYLINE HYDROCHLORIDE) [Concomitant]

REACTIONS (3)
  - ACUTE ABDOMEN [None]
  - CEREBROVASCULAR ACCIDENT [None]
  - RIGHT VENTRICULAR FAILURE [None]
